FAERS Safety Report 9235739 (Version 1)
Quarter: 2013Q2

REPORT INFORMATION
  Report Type: Spontaneous
  Country: US (occurrence: None)
  Receive Date: 20130416
  Receipt Date: 20130416
  Transmission Date: 20140414
  Serious: Yes (Hospitalization)
  Sender: FDA-Public Use
  Company Number: None

PATIENT
  Age: 79 Year
  Sex: Male

DRUGS (2)
  1. HEPARIN [Suspect]
     Indication: ATRIAL FIBRILLATION
     Dosage: 1000U/HR CONTINUOUS INFUSION IV DRIP
     Route: 041
     Dates: start: 20121022, end: 20121023
  2. WARFARIN SODIUM [Suspect]
     Indication: ATRIAL FIBRILLATION
     Dosage: 3 MG QHS PO
     Route: 048
     Dates: start: 20121023, end: 20121023

REACTIONS (5)
  - Haematuria [None]
  - Haemoglobin decreased [None]
  - Haemorrhage [None]
  - Atrial fibrillation [None]
  - Urinary tract infection [None]
